FAERS Safety Report 13937479 (Version 2)
Quarter: 2017Q3

REPORT INFORMATION
  Report Type: Spontaneous
  Country: US (occurrence: US)
  Receive Date: 20170905
  Receipt Date: 20170907
  Transmission Date: 20171127
  Serious: Yes (Hospitalization, Other)
  Sender: FDA-Public Use
  Company Number: US-JNJFOC-20170900203

PATIENT
  Age: 65 Year
  Sex: Female

DRUGS (2)
  1. RISPERIDONE. [Suspect]
     Active Substance: RISPERIDONE
     Indication: SCHIZOAFFECTIVE DISORDER
     Route: 048
  2. RISPERIDONE. [Suspect]
     Active Substance: RISPERIDONE
     Indication: SCHIZOAFFECTIVE DISORDER
     Dosage: ROUTE: INTRAMUSCULAR
     Route: 048

REACTIONS (11)
  - Dizziness [Unknown]
  - Nausea [Unknown]
  - Miosis [Unknown]
  - Wrong technique in product usage process [Unknown]
  - Pupillary reflex impaired [Unknown]
  - Fatigue [Unknown]
  - Disorientation [Unknown]
  - Incorrect route of drug administration [Unknown]
  - Asthenia [Unknown]
  - Inappropriate schedule of drug administration [Unknown]
  - Hypotension [Unknown]
